FAERS Safety Report 8011146-3 (Version None)
Quarter: 2011Q4

REPORT INFORMATION
  Report Type: 
  Country: None (occurrence: None)
  Receive Date: 20111228
  Receipt Date: 20111215
  Transmission Date: 20120403
  Serious: Yes (Hospitalization)
  Sender: FDA-Public Use
  Company Number: PHHY2011JP109735

PATIENT
  Age: 37 Year
  Sex: Female

DRUGS (7)
  1. CYCLOSPORINE [Suspect]
     Indication: PROPHYLAXIS AGAINST GRAFT VERSUS HOST DISEASE
     Dosage: 60 MG, UNK
  2. PREDNISOLONE [Concomitant]
     Indication: ACUTE GRAFT VERSUS HOST DISEASE IN SKIN
     Dosage: 20 MG, PER DAY
  3. PREDNISOLONE [Concomitant]
     Dosage: 7.5 MG, UNK
  4. METHOTREXATE [Concomitant]
     Dosage: 10 MG/M2, ON DAYS 3 AND 6
  5. CYCLOSPORINE [Suspect]
     Dosage: 80 MG, UNK
  6. PREDNISOLONE [Concomitant]
     Dosage: 2.5 MG, UNK
  7. METHOTREXATE [Concomitant]
     Indication: PROPHYLAXIS AGAINST GRAFT VERSUS HOST DISEASE
     Dosage: 15 MG/M2, ON DAY 1

REACTIONS (10)
  - GAMMA-GLUTAMYLTRANSFERASE INCREASED [None]
  - SUBDURAL HAEMATOMA [None]
  - ACUTE GRAFT VERSUS HOST DISEASE IN SKIN [None]
  - CYTOMEGALOVIRUS INFECTION [None]
  - PYREXIA [None]
  - BLOOD ALKALINE PHOSPHATASE INCREASED [None]
  - CHRONIC GRAFT VERSUS HOST DISEASE [None]
  - RASH [None]
  - HEADACHE [None]
  - HEPATIC FUNCTION ABNORMAL [None]
